FAERS Safety Report 5318744-6 (Version None)
Quarter: 2007Q2

REPORT INFORMATION
  Report Type: 
  Country: None (occurrence: None)
  Receive Date: 20070503
  Receipt Date: 20070503
  Transmission Date: 20071010
  Serious: No
  Sender: FDA-Public Use
  Company Number: None

PATIENT
  Age: 59 Year
  Sex: Female
  Weight: 108.8633 kg

DRUGS (1)
  1. TAXOL [Suspect]

REACTIONS (2)
  - DEVICE MALFUNCTION [None]
  - PROCEDURAL COMPLICATION [None]
